FAERS Safety Report 5830838-5 (Version None)
Quarter: 2008Q3

REPORT INFORMATION
  Report Type: 
  Country: None (occurrence: None)
  Receive Date: 20080801
  Receipt Date: 20071221
  Transmission Date: 20090109
  Serious: No
  Sender: FDA-Public Use
  Company Number: US-BRISTOL-MYERS SQUIBB COMPANY-14023576

PATIENT
  Age: 85 Year
  Sex: Female

DRUGS (10)
  1. COUMADIN [Suspect]
     Route: 048
  2. LISINOPRIL [Concomitant]
  3. AMOXIL [Concomitant]
  4. LIPITOR [Concomitant]
  5. OMEPRAZOLE [Concomitant]
  6. LEVOTHYROXINE SODIUM [Concomitant]
  7. CIPRO [Concomitant]
  8. METOPROLOL [Concomitant]
  9. MACROBID [Concomitant]
  10. SANCTURA [Concomitant]

REACTIONS (1)
  - DRUG INEFFECTIVE [None]
